FAERS Safety Report 6338380-2 (Version None)
Quarter: 2009Q3

REPORT INFORMATION
  Report Type: 
  Country: None (occurrence: None)
  Receive Date: 20090901
  Receipt Date: 20090817
  Transmission Date: 20100115
  Serious: Yes (Hospitalization)
  Sender: FDA-Public Use
  Company Number: 2009EK003929

PATIENT
  Age: 69 Year
  Sex: Male
  Weight: 89.9029 kg

DRUGS (12)
  1. NICARDIPINE HYDROCHLORIDE [Suspect]
     Indication: HYPERTENSION
     Dosage: 2 MG/KG; QH; IV, 1200 UG; X1; IV
     Route: 042
     Dates: start: 20090731, end: 20090731
  2. CLEVIPREX [Suspect]
     Indication: HYPERTENSION
     Dosage: 125 UG; X1; IV, 250 UG; ; IV
     Route: 042
     Dates: start: 20090731, end: 20090731
  3. FENTANYL-100 [Suspect]
     Indication: ANAESTHESIA
     Dosage: 500 UG; X1; IV, 250 UG; X1; IV
     Route: 042
     Dates: start: 20090731, end: 20090731
  4. MIDAZOLAM HCL [Suspect]
     Indication: ANAESTHESIA
     Dosage: 10 MG; X1; IV, 3 MG; X1; IV
     Route: 042
     Dates: start: 20090731, end: 20090731
  5. PHENYLEPHRINE (PHENYLEPHRINE) [Suspect]
     Indication: HYPOTENSION
     Dosage: 50 UG/MIN; ; IV
     Route: 042
     Dates: start: 20090731, end: 20090731
  6. EPINEPHRINE [Suspect]
     Indication: HYPOTENSION
     Dosage: 2 MG/MIN; ; IV
     Route: 042
     Dates: start: 20090731, end: 20090802
  7. HYDROMORPHONE HCL [Suspect]
     Indication: ANALGESIA
     Dosage: ; IV
     Route: 042
     Dates: start: 20090801, end: 20090801
  8. SODIUM BICARBONATE IN PLASTIC CONTAINER [Concomitant]
  9. MORPHINE [Concomitant]
  10. CALCIUM CHLORIDE [Concomitant]
  11. DIHYDRATE [Concomitant]
  12. INSULIN [Concomitant]

REACTIONS (7)
  - APHASIA [None]
  - DELIRIUM [None]
  - DEPRESSED LEVEL OF CONSCIOUSNESS [None]
  - ENCEPHALOPATHY [None]
  - HYPOTENSION [None]
  - MENTAL STATUS CHANGES [None]
  - POST PROCEDURAL COMPLICATION [None]
